FAERS Safety Report 9955240 (Version 1)
Quarter: 2014Q1

REPORT INFORMATION
  Report Type: Report from Study
  Country: US (occurrence: US)
  Receive Date: 20140304
  Receipt Date: 20140304
  Transmission Date: 20141002
  Serious: No
  Sender: FDA-Public Use
  Company Number: US-ABBVIE-13P-163-1075585-00

PATIENT
  Age: 50 Year
  Sex: Female

DRUGS (8)
  1. HUMIRA [Suspect]
     Indication: PSORIASIS
     Dates: start: 20121114, end: 20130227
  2. DEPAKOTE [Concomitant]
     Indication: DEPRESSION
     Dosage: 100 MG DAILY
     Route: 048
  3. DEPAKOTE [Concomitant]
     Indication: ANXIETY
  4. WELLBUTRIN [Concomitant]
     Indication: DEPRESSION
     Dosage: 150 MG DAILY
     Route: 048
  5. WELLBUTRIN [Concomitant]
     Indication: ANXIETY
  6. AVEENO LOTION [Concomitant]
     Indication: DRY SKIN
  7. IBUPROFEN [Concomitant]
     Indication: PAIN
  8. IBUPROFEN [Concomitant]
     Indication: HEADACHE

REACTIONS (2)
  - Bronchitis [Recovered/Resolved]
  - Influenza [Recovered/Resolved]
